FAERS Safety Report 7718653-9 (Version None)
Quarter: 2011Q3

REPORT INFORMATION
  Report Type: 
  Country: None (occurrence: None)
  Receive Date: 20110830
  Receipt Date: 20110819
  Transmission Date: 20111222
  Serious: Yes (Hospitalization, Other)
  Sender: FDA-Public Use
  Company Number: US-BAYER-201039939NA

PATIENT
  Sex: Female
  Weight: 57 kg

DRUGS (6)
  1. XANAX [Concomitant]
  2. HYDROCODONE BITARTRATE [Concomitant]
  3. NEXIUM [Concomitant]
  4. YAZ [Suspect]
     Indication: CONTRACEPTION
     Dosage: UNK
     Route: 048
     Dates: start: 20060101, end: 20100101
  5. ALLEGRA [Concomitant]
  6. PHENERGAN HCL [Concomitant]

REACTIONS (4)
  - CHOLELITHIASIS [None]
  - BILIARY DYSKINESIA [None]
  - GALLBLADDER DISORDER [None]
  - CHOLECYSTITIS CHRONIC [None]
